FAERS Safety Report 10759451 (Version 1)
Quarter: 2015Q1

REPORT INFORMATION
  Report Type: Spontaneous
  Country: US (occurrence: US)
  Receive Date: 20150203
  Receipt Date: 20150203
  Transmission Date: 20150721
  Serious: No
  Sender: FDA-Public Use
  Company Number: US-GLAXOSMITHKLINE-US2014GSK049190

PATIENT
  Sex: Female

DRUGS (1)
  1. ADVAIR DISKUS [Suspect]
     Active Substance: FLUTICASONE PROPIONATE\SALMETEROL XINAFOATE
     Indication: ASTHMA
     Dosage: 250 ?G, UNK
     Route: 055

REACTIONS (8)
  - Surgery [Unknown]
  - Chest discomfort [Unknown]
  - Drug dose omission [Unknown]
  - Depression [Unknown]
  - Asthma [Unknown]
  - Treatment noncompliance [Unknown]
  - Malaise [Unknown]
  - Drug administration error [Unknown]
